FAERS Safety Report 24875806 (Version 1)
Quarter: 2025Q1

REPORT INFORMATION
  Report Type: Spontaneous
  Country: US (occurrence: US)
  Receive Date: 20250122
  Receipt Date: 20250122
  Transmission Date: 20250408
  Serious: Yes (Other)
  Sender: PROCTER AND GAMBLE
  Company Number: US-PROCTER+GAMBLE-PH25000183

PATIENT
  Age: 75 Year
  Sex: Male

DRUGS (2)
  1. VICKS DAYQUIL SEVERE COLD AND FLU [Suspect]
     Active Substance: ACETAMINOPHEN\DEXTROMETHORPHAN HYDROBROMIDE\GUAIFENESIN\PHENYLEPHRINE HYDROCHLORIDE
     Indication: Nasopharyngitis
     Dosage: 1 LIQCAP, 1 ONLY
     Route: 048
     Dates: start: 20250108, end: 20250108
  2. VICKS DAYQUIL SEVERE COLD AND FLU [Suspect]
     Active Substance: ACETAMINOPHEN\DEXTROMETHORPHAN HYDROBROMIDE\GUAIFENESIN\PHENYLEPHRINE HYDROCHLORIDE
     Indication: Influenza

REACTIONS (4)
  - Choking [Recovered/Resolved]
  - Wrong technique in product usage process [Unknown]
  - Exposure via mucosa [Unknown]
  - Product use complaint [Unknown]

NARRATIVE: CASE EVENT DATE: 20250108
